FAERS Safety Report 22398388 (Version 1)
Quarter: 2023Q2

REPORT INFORMATION
  Report Type: Spontaneous
  Country: US (occurrence: US)
  Receive Date: 20230602
  Receipt Date: 20230602
  Transmission Date: 20230721
  Serious: No
  Sender: FDA-Public Use
  Company Number: US-ARBOR PHARMACEUTICALS, LLC-US-2022ARB001729

PATIENT
  Age: 67 Year
  Sex: Female

DRUGS (2)
  1. HORIZANT [Suspect]
     Active Substance: GABAPENTIN ENACARBIL
     Indication: Herpes zoster
     Dosage: 300 MILLIGRAM, ONCE
     Dates: start: 20220802, end: 20220802
  2. HORIZANT [Suspect]
     Active Substance: GABAPENTIN ENACARBIL
     Dosage: 600 MILLIGRAM
     Dates: start: 20220803

REACTIONS (3)
  - Dizziness [Unknown]
  - Balance disorder [Unknown]
  - Product use in unapproved indication [Unknown]

NARRATIVE: CASE EVENT DATE: 20220802
